FAERS Safety Report 10021031 (Version 2)
Quarter: 2014Q2

REPORT INFORMATION
  Report Type: Not Available
  Country: FR (occurrence: FR)
  Receive Date: 20140319
  Receipt Date: 20140409
  Transmission Date: 20141212
  Serious: Yes (Hospitalization)
  Sender: FDA-Public Use
  Company Number: FR-ASTELLAS-2014EU002171

PATIENT
  Age: 47 Year
  Sex: Male

DRUGS (9)
  1. PROGRAF [Suspect]
     Indication: RENAL TRANSPLANT
     Dosage: UNK
     Route: 048
     Dates: start: 20131226, end: 20140129
  2. CELLCEPT                           /01275102/ [Suspect]
     Indication: RENAL TRANSPLANT
     Dosage: UNK
     Route: 048
     Dates: start: 20131226, end: 20140120
  3. MYFORTIC [Suspect]
     Indication: RENAL TRANSPLANT
     Dosage: UNK
     Route: 048
     Dates: start: 20140120, end: 20140128
  4. INEXIUM                            /01479302/ [Suspect]
     Dosage: UNK
     Route: 065
     Dates: start: 20131226, end: 20140129
  5. PENTACARINAT [Suspect]
     Indication: ANTIFUNGAL PROPHYLAXIS
     Dosage: UNK
     Route: 055
     Dates: start: 20140106
  6. CORTANCYL [Suspect]
     Indication: RENAL TRANSPLANT
     Dosage: UNK
     Route: 048
     Dates: start: 20131226
  7. OFLOCET                            /00731801/ [Suspect]
     Indication: PROSTATITIS
     Dosage: UNK
     Route: 065
     Dates: start: 20131231, end: 20140127
  8. COLCHIMAX                          /00728901/ [Suspect]
     Indication: GOUT
     Dosage: UNK
     Route: 048
     Dates: start: 20140104, end: 20140110
  9. CICLOSPORIN [Concomitant]
     Dosage: UNK
     Route: 065

REACTIONS (2)
  - Pancreatitis [Recovered/Resolved]
  - Hepatitis cholestatic [Recovered/Resolved]
